FAERS Safety Report 10555295 (Version 5)
Quarter: 2015Q2

REPORT INFORMATION
  Report Type: Not Available
  Country: DE (occurrence: DE)
  Receive Date: 20141030
  Receipt Date: 20150629
  Transmission Date: 20150821
  Serious: Yes (Death, Other)
  Sender: FDA-Public Use
  Company Number: DE-CELGENE-062-21880-13121091

PATIENT

DRUGS (6)
  1. ASA [Concomitant]
     Active Substance: ASPIRIN
     Indication: ANTICOAGULANT THERAPY
     Dosage: 6 MILLIGRAM/SQ. METER
     Route: 065
  2. ADRIAMYCIN [Concomitant]
     Active Substance: DOXORUBICIN HYDROCHLORIDE
     Indication: HODGKIN^S DISEASE
     Route: 065
  3. REVLIMID [Suspect]
     Active Substance: LENALIDOMIDE
     Indication: HODGKIN^S DISEASE
     Dosage: 5-40MG
     Route: 048
  4. DACARBAZINE. [Concomitant]
     Active Substance: DACARBAZINE
     Indication: HODGKIN^S DISEASE
     Dosage: 25 MILLIGRAM/SQ. METER
     Route: 065
  5. VINBLASTIN [Concomitant]
     Active Substance: VINBLASTINE
     Indication: HODGKIN^S DISEASE
     Dosage: 375 MILLIGRAM/SQ. METER
     Route: 065
  6. HEPARIN [Concomitant]
     Active Substance: HEPARIN SODIUM
     Indication: ANTICOAGULANT THERAPY
     Route: 065

REACTIONS (18)
  - Pain [Unknown]
  - Nausea [Unknown]
  - Mucosal inflammation [Unknown]
  - Alopecia [Unknown]
  - Gastrointestinal disorder [Unknown]
  - Hodgkin^s disease [Unknown]
  - Nervous system disorder [Unknown]
  - Cardiac disorder [Unknown]
  - Haematotoxicity [Unknown]
  - Death [Fatal]
  - Leukopenia [Unknown]
  - Respiratory disorder [Not Recovered/Not Resolved]
  - Thrombocytopenia [Unknown]
  - Toxicity to various agents [Unknown]
  - Embolism venous [Unknown]
  - Vomiting [Unknown]
  - Anaemia [Unknown]
  - Infection [Unknown]
